FAERS Safety Report 8796249 (Version 1)
Quarter: 2012Q4

REPORT INFORMATION
  Report Type: 
  Country: FR (occurrence: FR)
  Receive Date: 20120919
  Receipt Date: 20120919
  Transmission Date: 20130627
  Serious: Yes (Hospitalization)
  Sender: FDA-Public Use
  Company Number: FR-SANOFI-AVENTIS-2012SA065354

PATIENT
  Age: 80 Year
  Sex: Male

DRUGS (11)
  1. LANTUS [Suspect]
     Indication: DIABETES
     Route: 058
     Dates: start: 201206, end: 20120714
  2. LAMOTRIGINE [Suspect]
     Indication: DRUG USE FOR UNKNOWN INDICATION
     Route: 048
     Dates: start: 20120606
  3. NOVONORM [Suspect]
     Indication: DIABETES
     Dosage: strength: 2mg
     Route: 048
     Dates: start: 201206, end: 20120714
  4. ZOLOFT [Suspect]
     Indication: DRUG USE FOR UNKNOWN INDICATION
     Route: 048
     Dates: start: 201204
  5. ATHYMIL [Suspect]
     Indication: DRUG USE FOR UNKNOWN INDICATION
     Route: 048
     Dates: start: 201204
  6. BACLOFEN [Suspect]
     Indication: DRUG USE FOR UNKNOWN INDICATION
     Route: 048
     Dates: start: 201204
  7. MELATONIN [Suspect]
     Indication: DRUG USE FOR UNKNOWN INDICATION
     Dosage: strength: 2mg
     Route: 048
     Dates: start: 201204
  8. OLMESARTAN [Concomitant]
     Route: 048
  9. BISOPROLOL [Concomitant]
     Route: 048
  10. ZOCOR [Concomitant]
     Route: 048
  11. KARDEGIC [Concomitant]
     Dosage: strength: 75mg
     Route: 048

REACTIONS (5)
  - Drug reaction with eosinophilia and systemic symptoms [Recovering/Resolving]
  - Eosinophilia [Recovering/Resolving]
  - Odynophagia [Recovered/Resolved]
  - Oedema [Recovered/Resolved]
  - Erythema [Recovered/Resolved]
